FAERS Safety Report 5130816-8 (Version None)
Quarter: 2006Q4

REPORT INFORMATION
  Report Type: 
  Country: None (occurrence: None)
  Receive Date: 20061019
  Receipt Date: 20061012
  Transmission Date: 20070319
  Serious: Yes (Hospitalization)
  Sender: FDA-Public Use
  Company Number: 2006UW19796

PATIENT
  Age: 41 Year
  Sex: Female
  Weight: 49.9 kg

DRUGS (4)
  1. SEROQUEL [Suspect]
     Route: 048
  2. KLONOPIN [Suspect]
  3. AMBIEN [Suspect]
  4. TRAMADOL HCL [Concomitant]

REACTIONS (2)
  - FEELING ABNORMAL [None]
  - MULTIPLE DRUG OVERDOSE ACCIDENTAL [None]
